FAERS Safety Report 12072850 (Version 1)
Quarter: 2016Q1

REPORT INFORMATION
  Report Type: Spontaneous
  Country: TR (occurrence: TR)
  Receive Date: 20160212
  Receipt Date: 20160212
  Transmission Date: 20160526
  Serious: Yes (Hospitalization)
  Sender: FDA-Public Use
  Company Number: TR-IPCA LABORATORIES LIMITED-IPC201601-000047

PATIENT
  Age: 45 Year
  Sex: Female

DRUGS (4)
  1. TRAMADOL. [Suspect]
     Active Substance: TRAMADOL
     Indication: PAIN
  2. CLOPIDOGREL [Concomitant]
     Active Substance: CLOPIDOGREL BISULFATE
  3. CEFAZOLIN [Concomitant]
     Active Substance: CEFAZOLIN
     Indication: PAIN MANAGEMENT
  4. BUPIVACAINE [Concomitant]
     Active Substance: BUPIVACAINE
     Indication: SPINAL ANAESTHESIA

REACTIONS (2)
  - Kounis syndrome [Unknown]
  - Myocardial infarction [Unknown]
